FAERS Safety Report 8482780-1 (Version None)
Quarter: 2012Q3

REPORT INFORMATION
  Report Type: 
  Country: None (occurrence: None)
  Receive Date: 20120702
  Receipt Date: 20120627
  Transmission Date: 20120928
  Serious: Yes (Other)
  Sender: FDA-Public Use
  Company Number: PHHY2011US22205

PATIENT
  Age: 52 Year
  Sex: Male

DRUGS (3)
  1. FILGRASTIM [Suspect]
  2. TACROLIMUS [Suspect]
     Indication: ALLOGENIC BONE MARROW TRANSPLANTATION THERAPY
  3. MYCOPHENOLATE MOFETIL [Suspect]

REACTIONS (1)
  - NEUTROPHIL PELGER-HUET ANOMALY PRESENT [None]
